FAERS Safety Report 8301038-4 (Version None)
Quarter: 2012Q2

REPORT INFORMATION
  Report Type: 
  Country: None (occurrence: None)
  Receive Date: 20120420
  Receipt Date: 20120412
  Transmission Date: 20120825
  Serious: Yes (Hospitalization)
  Sender: FDA-Public Use
  Company Number: JP-ELI_LILLY_AND_COMPANY-JP201203006239

PATIENT
  Age: 79 Year
  Sex: Male

DRUGS (8)
  1. ASPIRIN [Concomitant]
     Route: 065
  2. BISOPROLOL FUMARATE [Concomitant]
     Route: 065
  3. FAMOTIDINE [Concomitant]
     Route: 065
  4. LIPITOR [Concomitant]
     Dosage: UNK
     Route: 065
  5. CELECTOL [Concomitant]
     Route: 065
  6. TAMSULOSIN HCL [Concomitant]
     Route: 065
  7. FORTEO [Suspect]
     Indication: OSTEOPOROSIS
     Dosage: 20 UG, QD
     Route: 058
     Dates: start: 20111201
  8. MINIPLANOR [Concomitant]
     Dosage: UNK
     Route: 065

REACTIONS (2)
  - HOSPITALISATION [None]
  - ERYTHEMA [None]
